FAERS Safety Report 23064845 (Version 3)
Quarter: 2023Q4

REPORT INFORMATION
  Report Type: Report from Study
  Country: GB (occurrence: GB)
  Receive Date: 20231013
  Receipt Date: 20231115
  Transmission Date: 20240110
  Serious: Yes (Death, Hospitalization, Disabling, Other)
  Sender: FDA-Public Use
  Company Number: GB-KYOWAKIRIN-2023KK013595

PATIENT

DRUGS (2)
  1. POTELIGEO [Suspect]
     Active Substance: MOGAMULIZUMAB-KPKC
     Indication: Cutaneous T-cell lymphoma
     Dosage: 48 MG, 1X/WEEK
     Route: 042
     Dates: start: 20230809, end: 20230823
  2. OXYGEN [Concomitant]
     Active Substance: OXYGEN
     Indication: Chronic obstructive pulmonary disease
     Dosage: UNK
     Route: 045
     Dates: start: 20230823, end: 202309

REACTIONS (2)
  - Disease progression [Fatal]
  - Pneumonitis [Not Recovered/Not Resolved]

NARRATIVE: CASE EVENT DATE: 20230824
